FAERS Safety Report 4967147-2 (Version None)
Quarter: 2006Q2

REPORT INFORMATION
  Report Type: 
  Country: None (occurrence: None)
  Receive Date: 20060404
  Receipt Date: 20060323
  Transmission Date: 20061013
  Serious: Yes (Hospitalization, Other)
  Sender: FDA-Public Use
  Company Number: USA-2006-0023879

PATIENT
  Sex: Male

DRUGS (1)
  1. OXYCONTIN [Suspect]
     Indication: BACK PAIN
     Dosage: UNK
     Route: 065

REACTIONS (5)
  - BACK PAIN [None]
  - DRUG DEPENDENCE [None]
  - MOBILITY DECREASED [None]
  - ORAL INTAKE REDUCED [None]
  - THERAPY NON-RESPONDER [None]
